FAERS Safety Report 23090859 (Version 1)
Quarter: 2023Q4

REPORT INFORMATION
  Report Type: Spontaneous
  Country: GB (occurrence: GB)
  Receive Date: 20231020
  Receipt Date: 20231020
  Transmission Date: 20240109
  Serious: Yes (Other)
  Sender: FDA-Public Use
  Company Number: GB-SUN PHARMACEUTICAL INDUSTRIES LTD-2023RR-413707

PATIENT
  Age: 64 Year
  Sex: Female
  Weight: 86 kg

DRUGS (4)
  1. PREGABALIN [Suspect]
     Active Substance: PREGABALIN
     Indication: Product used for unknown indication
     Dosage: 1 2X/DAY FOR 1 WEEK, THEN 1 3X/DAY FOR 1 WEEK, THEN 1 A WEEK AS TOLERATED 3X/DAY.
     Route: 065
     Dates: start: 20230901, end: 20230922
  2. AMITRIPTYLINE HYDROCHLORIDE [Concomitant]
     Active Substance: AMITRIPTYLINE HYDROCHLORIDE
     Indication: Product used for unknown indication
     Dosage: ONE OR TWO TO BE TAKEN EACH NIGHT. START WITH O...
     Route: 065
     Dates: start: 20230707, end: 20230804
  3. ESOMEPRAZOLE [Concomitant]
     Active Substance: ESOMEPRAZOLE
     Indication: Product used for unknown indication
     Dosage: 1 DOSAGE FORM, DAILY
     Route: 065
     Dates: start: 20230411
  4. IBUPROFEN [Concomitant]
     Active Substance: IBUPROFEN
     Indication: Product used for unknown indication
     Dosage: APPLY 3-4 TIMES/DAY
     Route: 065
     Dates: start: 20210917

REACTIONS (1)
  - Headache [Recovered/Resolved]
